FAERS Safety Report 21489736 (Version 2)
Quarter: 2022Q4

REPORT INFORMATION
  Report Type: Spontaneous
  Country: US (occurrence: US)
  Receive Date: 20221021
  Receipt Date: 20221114
  Transmission Date: 20230113
  Serious: No
  Sender: FDA-Public Use
  Company Number: US-PHARMAESSENTIA CORPORATION-US-2022-PEC-000801

PATIENT

DRUGS (4)
  1. BESREMI [Suspect]
     Active Substance: ROPEGINTERFERON ALFA-2B-NJFT
     Indication: Embolism arterial
     Dosage: 50 MCG, Q2W
     Route: 058
     Dates: start: 20220705
  2. BESREMI [Suspect]
     Active Substance: ROPEGINTERFERON ALFA-2B-NJFT
     Indication: Arterial thrombosis
     Dosage: 250 MCG
     Route: 065
     Dates: start: 20220831
  3. BESREMI [Suspect]
     Active Substance: ROPEGINTERFERON ALFA-2B-NJFT
     Indication: Phlebitis
     Dosage: UNK
     Route: 065
  4. BESREMI [Suspect]
     Active Substance: ROPEGINTERFERON ALFA-2B-NJFT
     Indication: Thrombophlebitis

REACTIONS (4)
  - Off label use [Unknown]
  - Pruritus [Unknown]
  - Bone pain [Unknown]
  - Fatigue [Unknown]
